FAERS Safety Report 15978770 (Version 2)
Quarter: 2019Q2

REPORT INFORMATION
  Report Type: Spontaneous
  Country: PT (occurrence: PT)
  Receive Date: 20190219
  Receipt Date: 20190409
  Transmission Date: 20190711
  Serious: Yes (Life-Threatening, Hospitalization, Other)
  Sender: FDA-Public Use
  Company Number: PT-009507513-1902PRT006253

PATIENT
  Age: 53 Year
  Sex: Male

DRUGS (2)
  1. KEYTRUDA [Suspect]
     Active Substance: PEMBROLIZUMAB
     Indication: NON-SMALL CELL LUNG CANCER
     Dosage: UNK
     Dates: start: 20181221, end: 20190201
  2. KEYTRUDA [Suspect]
     Active Substance: PEMBROLIZUMAB
     Indication: MALIGNANT NEOPLASM PROGRESSION

REACTIONS (3)
  - Pericardial effusion [Recovering/Resolving]
  - Malignant neoplasm progression [Unknown]
  - Cardiac tamponade [Recovering/Resolving]

NARRATIVE: CASE EVENT DATE: 201902
